FAERS Safety Report 5353104-3 (Version None)
Quarter: 2007Q2

REPORT INFORMATION
  Report Type: 
  Country: None (occurrence: None)
  Receive Date: 20070611
  Receipt Date: 20070530
  Transmission Date: 20071010
  Serious: Yes (Other)
  Sender: FDA-Public Use
  Company Number: US-PFIZER INC-2007045367

PATIENT
  Sex: Female
  Weight: 89.4 kg

DRUGS (6)
  1. CHANTIX [Suspect]
     Indication: EX-SMOKER
     Dosage: FREQ:DAILY
     Dates: start: 20070501, end: 20070501
  2. FEXOFENADINE [Suspect]
     Indication: EAR CONGESTION
     Dates: start: 20070501, end: 20070501
  3. SYNTHROID [Concomitant]
     Indication: THYROID DISORDER
  4. XANAX [Concomitant]
  5. LIPITOR [Concomitant]
     Indication: BLOOD CHOLESTEROL
  6. CLONIDINE [Concomitant]
     Indication: HYPERTENSION

REACTIONS (5)
  - EAR CONGESTION [None]
  - FEELING ABNORMAL [None]
  - IMPAIRED DRIVING ABILITY [None]
  - INFECTION [None]
  - NAUSEA [None]
